FAERS Safety Report 4353673-6 (Version None)
Quarter: 2004Q2

REPORT INFORMATION
  Report Type: 
  Country: None (occurrence: None)
  Receive Date: 20040430
  Receipt Date: 20040408
  Transmission Date: 20050107
  Serious: Yes (Hospitalization)
  Sender: FDA-Public Use
  Company Number: 2004IM000579

PATIENT
  Age: 21 Year
  Sex: Female
  Weight: 54.4316 kg

DRUGS (10)
  1. INFERGEN [Suspect]
     Indication: HEPATITIS C
     Dosage: 15 MU; TIW; SUBCUTANEOUS
     Route: 058
     Dates: start: 20031105
  2. RIBAVIRIN [Suspect]
     Indication: HEPATITIS C
     Dosage: 800 MU; QD; ORAL
     Route: 048
     Dates: start: 20031105
  3. EPOGEN [Suspect]
     Indication: ANAEMIA
     Dosage: 40000 UN; X1; SUBCUTANEOUS
     Route: 058
     Dates: start: 20040329, end: 20040405
  4. ALESE BCP [Concomitant]
  5. AMBIEN [Concomitant]
  6. ZOLOFT [Concomitant]
  7. ZOFRAN [Concomitant]
  8. FOLIC ACID [Concomitant]
  9. VITAMIN B COMPLEX CAP [Concomitant]
  10. ORAL CONTRACEPTIVES [Concomitant]

REACTIONS (6)
  - ASTHENIA [None]
  - CLONUS [None]
  - CONVULSION [None]
  - DIFFICULTY IN WALKING [None]
  - LOSS OF CONSCIOUSNESS [None]
  - TREMOR [None]
